FAERS Safety Report 7772464-7 (Version None)
Quarter: 2011Q3

REPORT INFORMATION
  Report Type: 
  Country: None (occurrence: None)
  Receive Date: 20110922
  Receipt Date: 20110915
  Transmission Date: 20111222
  Serious: Yes (Hospitalization)
  Sender: FDA-Public Use
  Company Number: JP-EISAI INC-E3810-04946-CLI-JP

PATIENT
  Sex: Male
  Weight: 56 kg

DRUGS (5)
  1. ASPIRIN [Concomitant]
     Route: 048
     Dates: end: 20110914
  2. MAGMITT [Concomitant]
     Route: 048
     Dates: start: 20110909, end: 20110914
  3. URSO 250 [Concomitant]
     Route: 048
     Dates: start: 20101208, end: 20110914
  4. PURSENNID [Concomitant]
     Route: 048
     Dates: start: 20110909, end: 20110914
  5. RABEPRAZOLE SODIUM [Suspect]
     Dosage: UNKNOWN
     Route: 048
     Dates: start: 20110808, end: 20110914

REACTIONS (1)
  - DUODENAL ULCER [None]
